FAERS Safety Report 5676533-7 (Version None)
Quarter: 2008Q1

REPORT INFORMATION
  Report Type: 
  Country: None (occurrence: None)
  Receive Date: 20080321
  Receipt Date: 20080321
  Transmission Date: 20080703
  Serious: Yes (Hospitalization)
  Sender: FDA-Public Use
  Company Number: None

PATIENT
  Age: 58 Year
  Sex: Male

DRUGS (9)
  1. INVEGA [Suspect]
     Dosage: PRIOR TO ADMISSION
  2. WELLBUTRIN [Concomitant]
  3. BENICAR [Concomitant]
  4. NORVASC [Concomitant]
  5. TOPROL [Concomitant]
  6. VICODIN [Concomitant]
  7. RIBAVIRIN [Concomitant]
  8. METHADON HCL TAB [Concomitant]
  9. LITHIUM [Concomitant]

REACTIONS (5)
  - DEHYDRATION [None]
  - DELIRIUM [None]
  - HYPOTENSION [None]
  - PYREXIA [None]
  - SEPSIS [None]
